FAERS Safety Report 21498638 (Version 1)
Quarter: 2022Q4

REPORT INFORMATION
  Report Type: Spontaneous
  Country: US (occurrence: None)
  Receive Date: 20221023
  Receipt Date: 20221023
  Transmission Date: 20230113
  Serious: Yes (Other)
  Sender: FDA-Public Use
  Company Number: None

PATIENT
  Age: 19 Year
  Sex: Female
  Weight: 76.5 kg

DRUGS (2)
  1. OLD SPICE WILDERNESS WITH LAVENDER [Suspect]
     Active Substance: ALUMINUM ZIRCONIUM TETRACHLOROHYDREX GLY
     Indication: Skin odour abnormal
     Dosage: OTHER QUANTITY : 1 OUNCE(S);?FREQUENCY : TWICE A DAY;?
     Route: 061
  2. OLD SPICE WILDERNESS WITH LAVENDER [Suspect]
     Active Substance: ALUMINUM ZIRCONIUM TETRACHLOROHYDREX GLY

REACTIONS (1)
  - Chemical burn [None]

NARRATIVE: CASE EVENT DATE: 20221020
